FAERS Safety Report 7497227-1 (Version None)
Quarter: 2011Q2

REPORT INFORMATION
  Report Type: 
  Country: None (occurrence: None)
  Receive Date: 20110523
  Receipt Date: 20110114
  Transmission Date: 20111010
  Serious: No
  Sender: FDA-Public Use
  Company Number: US-NOVEN-11US001625

PATIENT
  Age: 6 Year
  Sex: Female

DRUGS (1)
  1. DAYTRANA [Suspect]
     Indication: PRODUCT USED FOR UNKNOWN INDICATION
     Dosage: 1 10 MG PATCH QD FOR 9 HOURS

REACTIONS (2)
  - DECREASED APPETITE [None]
  - WEIGHT DECREASED [None]
